FAERS Safety Report 5755095-X (Version None)
Quarter: 2008Q2

REPORT INFORMATION
  Report Type: 
  Country: None (occurrence: None)
  Receive Date: 20080602
  Receipt Date: 20080122
  Transmission Date: 20081010
  Serious: Yes (Hospitalization)
  Sender: FDA-Public Use
  Company Number: A0704596A

PATIENT
  Age: 72 Year
  Sex: Female

DRUGS (6)
  1. AUGMENTIN '125' [Suspect]
     Indication: SINUSITIS
     Dosage: 875MG SEE DOSAGE TEXT
     Route: 048
     Dates: start: 20071201
  2. PREDNISONE TAB [Concomitant]
  3. TOPROL-XL [Concomitant]
  4. NIFEDIPINE [Concomitant]
  5. AZATHIOPRINE [Concomitant]
  6. INSULIN [Concomitant]

REACTIONS (2)
  - AUTOIMMUNE THROMBOCYTOPENIA [None]
  - PLATELET COUNT DECREASED [None]
